FAERS Safety Report 8561509-2 (Version None)
Quarter: 2012Q3

REPORT INFORMATION
  Report Type: 
  Country: None (occurrence: None)
  Receive Date: 20120802
  Receipt Date: 20120718
  Transmission Date: 20120928
  Serious: No
  Sender: FDA-Public Use
  Company Number: US-ASTRAZENECA-2012SE50355

PATIENT
  Age: 54 Year
  Sex: Female

DRUGS (8)
  1. PULMICORT FLEXHALER [Suspect]
     Indication: ASTHMA
     Route: 055
     Dates: start: 20120501
  2. PROTONIX [Concomitant]
  3. FLUTICASONE PROPIONATE [Concomitant]
  4. VERAPAMIL [Concomitant]
  5. ATROVENT [Concomitant]
  6. VISTARIL [Concomitant]
  7. EPIPEN [Concomitant]
  8. PREMARIN [Concomitant]

REACTIONS (1)
  - DYSPNOEA [None]
